FAERS Safety Report 4594422-6 (Version None)
Quarter: 2005Q1

REPORT INFORMATION
  Report Type: 
  Country: None (occurrence: None)
  Receive Date: 20050301
  Receipt Date: 20040129
  Transmission Date: 20050727
  Serious: No
  Sender: FDA-Public Use
  Company Number: US-GLAXOSMITHKLINE-A0495761A

PATIENT
  Age: 40 Year
  Sex: Female

DRUGS (1)
  1. VALTREX [Suspect]
     Dosage: 1G PER DAY
     Route: 048

REACTIONS (4)
  - ARTHRALGIA [None]
  - COMPLEMENT FACTOR C3 DECREASED [None]
  - GINGIVAL RECESSION [None]
  - SKIN DISORDER [None]
